FAERS Safety Report 12892969 (Version 1)
Quarter: 2016Q4

REPORT INFORMATION
  Report Type: Other
  Country: FR (occurrence: FR)
  Receive Date: 20161028
  Receipt Date: 20161028
  Transmission Date: 20170207
  Serious: Yes (Hospitalization, Other)
  Sender: FDA-Public Use
  Company Number: FR-ASTELLAS-2016US042052

PATIENT
  Age: 15 Year
  Sex: Male

DRUGS (2)
  1. CELLCEPT [Suspect]
     Active Substance: MYCOPHENOLATE MOFETIL\MYCOPHENOLATE MOFETIL HYDROCHLORIDE
     Indication: RENAL TRANSPLANT
     Dosage: UNK UNK, UNKNOWN FREQ.
     Route: 048
     Dates: start: 2004, end: 20160127
  2. ADVAGRAF [Suspect]
     Active Substance: TACROLIMUS
     Indication: RENAL TRANSPLANT
     Dosage: UNK UNK, UNKNOWN FREQ.
     Route: 048
     Dates: start: 2004, end: 20160127

REACTIONS (4)
  - Drug administered to patient of inappropriate age [Unknown]
  - High grade B-cell lymphoma Burkitt-like lymphoma [Recovering/Resolving]
  - Urinoma [Unknown]
  - Hydrocele [Unknown]

NARRATIVE: CASE EVENT DATE: 20160120
